FAERS Safety Report 24006172 (Version 1)
Quarter: 2024Q2

REPORT INFORMATION
  Report Type: Spontaneous
  Country: US (occurrence: None)
  Receive Date: 20240624
  Receipt Date: 20240624
  Transmission Date: 20240717
  Serious: No
  Sender: FDA-Public Use
  Company Number: 2024A142683

PATIENT
  Sex: Female

DRUGS (4)
  1. LYNPARZA [Suspect]
     Active Substance: OLAPARIB
     Route: 048
  2. TUKYSA [Suspect]
     Active Substance: TUCATINIB
     Dosage: 150.0MG UNKNOWN
  3. NALTREXONE [Concomitant]
     Active Substance: NALTREXONE
  4. IVERMECTIN [Concomitant]
     Active Substance: IVERMECTIN

REACTIONS (1)
  - Drug interaction [Unknown]
